FAERS Safety Report 12597570 (Version 1)
Quarter: 2016Q3

REPORT INFORMATION
  Report Type: Spontaneous
  Country: US (occurrence: US)
  Receive Date: 20160727
  Receipt Date: 20160727
  Transmission Date: 20161109
  Serious: No
  Sender: FDA-Public Use
  Company Number: US-PFIZER INC-2016208734

PATIENT
  Age: 71 Year
  Sex: Female
  Weight: 90.26 kg

DRUGS (15)
  1. CALCIUM + MAGNESIUM + ZINK [Concomitant]
     Dosage: UNK
  2. VITAMIN B12 [Concomitant]
     Active Substance: CYANOCOBALAMIN
     Dosage: UNK
  3. LYRICA [Suspect]
     Active Substance: PREGABALIN
     Indication: BACK PAIN
     Dosage: 50 MG, 3X/DAY
     Route: 048
     Dates: start: 20160523, end: 201605
  4. TRAMADOL. [Concomitant]
     Active Substance: TRAMADOL
     Dosage: 50 MG, UNK
  5. ZETIA [Concomitant]
     Active Substance: EZETIMIBE
     Dosage: UNK
  6. ARMOUR THYROID [Concomitant]
     Active Substance: THYROID, PORCINE
     Dosage: 120 MG, UNK
  7. XANAX [Concomitant]
     Active Substance: ALPRAZOLAM
     Dosage: 1 MG, AS NEEDED (1 1/2  AT NIGHT)
  8. AMLODIPINE [Concomitant]
     Active Substance: AMLODIPINE BESYLATE
     Dosage: 5 MG, UNK
  9. LOSARTAN. [Concomitant]
     Active Substance: LOSARTAN
     Dosage: 50 MG, UNK
  10. OMEPRAZOLE. [Concomitant]
     Active Substance: OMEPRAZOLE
     Dosage: 20 MG, UNK
  11. AMOXICILLIN. [Concomitant]
     Active Substance: AMOXICILLIN
     Dosage: UNK
  12. VITAMIN D3 [Concomitant]
     Active Substance: CHOLECALCIFEROL
     Dosage: UNK
  13. MELOXICAM. [Concomitant]
     Active Substance: MELOXICAM
     Dosage: 15 MG, UNK
  14. MELATONIN [Concomitant]
     Active Substance: MELATONIN
     Dosage: 5 MG, UNK
  15. LISINOPRIL. [Concomitant]
     Active Substance: LISINOPRIL
     Dosage: UNK

REACTIONS (3)
  - Peripheral swelling [Recovered/Resolved]
  - Drug ineffective [Unknown]
  - Joint swelling [Recovered/Resolved]

NARRATIVE: CASE EVENT DATE: 201605
